FAERS Safety Report 12780620 (Version 1)
Quarter: 2016Q3

REPORT INFORMATION
  Report Type: Report from Study
  Country: CA (occurrence: CA)
  Receive Date: 20160926
  Receipt Date: 20160926
  Transmission Date: 20161109
  Serious: Yes (Death, Other)
  Sender: FDA-Public Use
  Company Number: CA-GILEAD-2016-0200570

PATIENT
  Age: 75 Year
  Sex: Female

DRUGS (2)
  1. IBAVYR [Suspect]
     Active Substance: RIBAVIRIN
     Indication: HEPATITIS C
     Dosage: UNK
     Route: 048
     Dates: start: 20150912
  2. SOFOSBUVIR [Suspect]
     Active Substance: SOFOSBUVIR
     Indication: HEPATITIS C
     Dosage: UNK
     Route: 048
     Dates: start: 20150912

REACTIONS (3)
  - Hepatitis C [Fatal]
  - Death [Fatal]
  - Drug ineffective [Fatal]

NARRATIVE: CASE EVENT DATE: 20160216
